FAERS Safety Report 20110110 (Version 1)
Quarter: 2021Q4

REPORT INFORMATION
  Report Type: Report from Study
  Country: US (occurrence: US)
  Receive Date: 20211124
  Receipt Date: 20211124
  Transmission Date: 20220303
  Serious: No
  Sender: FDA-Public Use
  Company Number: US-SUNOVION-2021SUN004362

PATIENT
  Sex: Male

DRUGS (1)
  1. KYNMOBI [Suspect]
     Active Substance: APOMORPHINE HYDROCHLORIDE
     Dosage: 25 MG
     Route: 060
     Dates: start: 20210610

REACTIONS (3)
  - Insomnia [Unknown]
  - Dry mouth [Unknown]
  - Therapy cessation [Unknown]

NARRATIVE: CASE EVENT DATE: 20211012
